FAERS Safety Report 10355840 (Version 1)
Quarter: 2014Q3

REPORT INFORMATION
  Report Type: Spontaneous
  Country: US (occurrence: US)
  Receive Date: 20140731
  Receipt Date: 20140731
  Transmission Date: 20150326
  Serious: Yes (Other)
  Sender: FDA-Public Use
  Company Number: US-AMGEN-USASP2014057067

PATIENT
  Sex: Female
  Weight: 59.86 kg

DRUGS (1)
  1. PROLIA [Suspect]
     Active Substance: DENOSUMAB
     Indication: OSTEOPOROSIS POSTMENOPAUSAL
     Dosage: UNK
     Route: 065

REACTIONS (5)
  - Surgery [Unknown]
  - Body height decreased [Unknown]
  - Bone density abnormal [Unknown]
  - Cardiac failure congestive [Unknown]
  - Rheumatoid arthritis [Unknown]
